FAERS Safety Report 13230169 (Version 1)
Quarter: 2017Q1

REPORT INFORMATION
  Report Type: Spontaneous
  Country: CA (occurrence: US)
  Receive Date: 20170214
  Receipt Date: 20170214
  Transmission Date: 20170428
  Serious: Yes (Hospitalization)
  Sender: FDA-Public Use
  Company Number: None

PATIENT
  Age: 63 Year
  Sex: Male
  Weight: 117 kg

DRUGS (3)
  1. ZOLADEX [Suspect]
     Active Substance: GOSERELIN ACETATE
     Dates: end: 20120417
  2. COUMADIN [Concomitant]
     Active Substance: WARFARIN SODIUM
  3. CASODEX [Suspect]
     Active Substance: BICALUTAMIDE
     Dates: end: 20120201

REACTIONS (5)
  - Hypersensitivity [None]
  - Atrial fibrillation [None]
  - Haematuria [None]
  - Chest pain [None]
  - Renal disorder [None]

NARRATIVE: CASE EVENT DATE: 20151106
